FAERS Safety Report 8834727 (Version 1)
Quarter: 2012Q4

REPORT INFORMATION
  Report Type: Spontaneous
  Country: SG (occurrence: None)
  Receive Date: 20121009
  Receipt Date: 20121009
  Transmission Date: 20130627
  Serious: Yes (Hospitalization)
  Sender: FDA-Public Use
  Company Number: B0835563A

PATIENT
  Age: 38 Year
  Sex: Female

DRUGS (3)
  1. EPIVIR [Suspect]
     Indication: HIV INFECTION
     Route: 048
  2. TENOFOVIR [Suspect]
     Indication: HIV INFECTION
  3. EFAVIRENZ [Suspect]
     Indication: HIV INFECTION

REACTIONS (11)
  - Immune reconstitution inflammatory syndrome [None]
  - Pyrexia [None]
  - Nausea [None]
  - Vomiting [None]
  - Abdominal pain [None]
  - Hepatic enzyme increased [None]
  - Hepatosplenomegaly [None]
  - Pericardial effusion [None]
  - General physical health deterioration [None]
  - Mycobacterium test positive [None]
  - Opportunistic infection [None]
